FAERS Safety Report 5301944-9 (Version None)
Quarter: 2007Q2

REPORT INFORMATION
  Report Type: 
  Country: None (occurrence: None)
  Receive Date: 20070419
  Receipt Date: 20070408
  Transmission Date: 20071010
  Serious: Yes (Hospitalization)
  Sender: FDA-Public Use
  Company Number: US-AMGEN-STX210257

PATIENT
  Sex: Female
  Weight: 74.9 kg

DRUGS (7)
  1. ENBREL [Suspect]
     Indication: RHEUMATOID ARTHRITIS
     Route: 058
     Dates: start: 20000621, end: 20070107
  2. METHOTREXATE [Concomitant]
     Route: 048
     Dates: start: 19980101
  3. ASPIRIN [Concomitant]
  4. HORMONE NOS [Concomitant]
  5. FOLIC ACID [Concomitant]
  6. ENALAPRIL [Concomitant]
     Route: 048
  7. HYDROCHLOROTHIAZIDE [Concomitant]
     Route: 048

REACTIONS (11)
  - ABDOMINAL PAIN [None]
  - BLINDNESS [None]
  - DIARRHOEA [None]
  - DYSARTHRIA [None]
  - HYPERTENSION [None]
  - ISCHAEMIC STROKE [None]
  - MALAISE [None]
  - MIGRAINE [None]
  - NAUSEA [None]
  - SYNCOPE [None]
  - VOMITING [None]
